FAERS Safety Report 22374523 (Version 1)
Quarter: 2023Q2

REPORT INFORMATION
  Report Type: Spontaneous
  Country: GB (occurrence: GB)
  Receive Date: 20230526
  Receipt Date: 20230526
  Transmission Date: 20230721
  Serious: Yes (Disabling, Other)
  Sender: FDA-Public Use
  Company Number: GB-AstraZeneca-2023A112603

PATIENT
  Sex: Female

DRUGS (1)
  1. TAMOXIFEN [Suspect]
     Active Substance: TAMOXIFEN
     Indication: Product used for unknown indication
     Route: 048

REACTIONS (3)
  - Mobility decreased [Unknown]
  - Meningeal disorder [Unknown]
  - Metastases to central nervous system [Unknown]
